FAERS Safety Report 5825471-5 (Version None)
Quarter: 2008Q3

REPORT INFORMATION
  Report Type: 
  Country: None (occurrence: None)
  Receive Date: 20080729
  Receipt Date: 20080723
  Transmission Date: 20090109
  Serious: Yes (Death)
  Sender: FDA-Public Use
  Company Number: PHHO2008IL09129

PATIENT
  Sex: Male
  Weight: 81 kg

DRUGS (1)
  1. TASIGNA [Suspect]
     Indication: GASTROINTESTINAL STROMAL TUMOUR
     Dosage: 80 MG DAY
     Route: 048
     Dates: start: 20080626

REACTIONS (6)
  - GENERALISED OEDEMA [None]
  - HEPATIC FAILURE [None]
  - HEPATIC FUNCTION ABNORMAL [None]
  - HYPOALBUMINAEMIA [None]
  - RENAL FAILURE [None]
  - RENAL IMPAIRMENT [None]
